FAERS Safety Report 11104002 (Version 1)
Quarter: 2015Q2

REPORT INFORMATION
  Report Type: Spontaneous
  Country: US (occurrence: None)
  Receive Date: 20150508
  Receipt Date: 20150508
  Transmission Date: 20150821
  Serious: No
  Sender: FDA-Public Use
  Company Number: None

PATIENT
  Age: 54 Year
  Sex: Male

DRUGS (1)
  1. SOVALDI [Suspect]
     Active Substance: SOFOSBUVIR
     Indication: CHRONIC HEPATITIS C
     Dosage: ORAL 047
     Route: 048

REACTIONS (1)
  - Joint swelling [None]

NARRATIVE: CASE EVENT DATE: 20150506
